FAERS Safety Report 25164390 (Version 1)
Quarter: 2025Q2

REPORT INFORMATION
  Report Type: Spontaneous
  Country: US (occurrence: US)
  Receive Date: 20250405
  Receipt Date: 20250405
  Transmission Date: 20250716
  Serious: Yes (Hospitalization, Other)
  Sender: DR REDDYS
  Company Number: US-DRL-USA-USA/2025/03/004807

PATIENT
  Age: 65 Year
  Sex: Female

DRUGS (2)
  1. DASATINIB [Suspect]
     Active Substance: DASATINIB
     Indication: Chronic myeloid leukaemia
  2. BRILINTA [Suspect]
     Active Substance: TICAGRELOR
     Indication: Peripheral arterial occlusive disease

REACTIONS (1)
  - Atrioventricular block complete [Unknown]
